FAERS Safety Report 9145763 (Version 1)
Quarter: 2013Q1

REPORT INFORMATION
  Report Type: Spontaneous
  Country: US (occurrence: None)
  Receive Date: 20130221
  Receipt Date: 20130221
  Transmission Date: 20140127
  Serious: Yes (Death)
  Sender: FDA-Public Use
  Company Number: 2013-00499

PATIENT
  Age: 56 Year
  Sex: Female

DRUGS (9)
  1. LISINOPRIL (UNKNOWN (LISINOPRIL) [Suspect]
     Indication: PRODUCT USED FOR UNKNOWN INDICATION
     Dosage: (UNKNOWN (UNKNOWN, UNKNOWN) UNKNOWN?UNKNOWN  -
  2. SUMATRIPTAN (UNKNOWN) (SUMATRIPTAN) [Suspect]
     Indication: PRODUCT USED FOR UNKNOWN INDICATION
     Dosage: UNKNOWN (UNKNOWN, UNKNOWN) UNKNOWN?UNKNOWN  -
  3. CITALOPRAM (UNKNOWN) (CITALOPRAM) [Suspect]
     Indication: PRODUCT USED FOR UNKNOWN INDICATION
     Dosage: UNKNOWN (UNKNOWN, UNKNOWN) UNKNOWN?UNKNOWN  -
  4. CLONAZEPAM (UNKNOWN) [Suspect]
     Indication: PRODUCT USED FOR UNKNOWN INDICATION
     Dosage: UNKNOWN (UNKNOWN, UNKNOWN) UNKNOWN?UNKNOWN  -
  5. GABAPENTIN (UNKNOWN) [Suspect]
     Indication: PRODUCT USED FOR UNKNOWN INDICATION
     Dosage: UNKNOWN (UNKNOWN, UNKNOWN) UNKNOWN?UNKNOWN  -
  6. CYCLOBENZAPRINE (UNKNOWN) [Suspect]
     Indication: PRODUCT USED FOR UNKNOWN INDICATION
     Dosage: UNKNOWN (UNKNOWN, UNKNOWN) UNKNOWN?UNKNOWN  -
  7. ACETAMINOPHEN / BUTALBITAL / CAFFEINE (UNKNOWN) [Suspect]
     Indication: PRODUCT USED FOR UNKNOWN INDICATION
     Dosage: UNKNOWN (UNKNOWN, UNKNOWN) UNKNOWN?UNKNOWN  -
  8. ZOLPIDEM (UNKNOWN) [Suspect]
     Indication: PRODUCT USED FOR UNKNOWN INDICATION
     Dosage: UNKNOWN (UNKNOWN, UNKNOWN) UNKNOWN?UNKNOWN  -?
  9. NAPROXEN (UNKNOWN) [Suspect]
     Indication: PRODUCT USED FOR UNKNOWN INDICATION
     Dosage: UNKNOWN (UNKNOWN, UNKNOWN) UNKNOWN?UNKNOWN

REACTIONS (1)
  - Completed suicide [None]
